FAERS Safety Report 4312148-0 (Version None)
Quarter: 2004Q1

REPORT INFORMATION
  Report Type: 
  Country: None (occurrence: None)
  Receive Date: 20040303
  Receipt Date: 19990503
  Transmission Date: 20041129
  Serious: Yes (Other)
  Sender: FDA-Public Use
  Company Number: US-JNJFOC-20031104534

PATIENT
  Sex: Male
  Weight: 102.5 kg

DRUGS (10)
  1. REMICADE [Suspect]
     Indication: CROHN'S DISEASE
     Dosage: 20 MG/KG, INTRAVENOUS; 10 MG/KG, INTRAVENOUS
     Route: 042
     Dates: start: 19950913
  2. REMICADE [Suspect]
     Indication: CROHN'S DISEASE
     Dosage: 20 MG/KG, INTRAVENOUS; 10 MG/KG, INTRAVENOUS
     Route: 042
     Dates: start: 19951206
  3. REMICADE [Suspect]
     Indication: CROHN'S DISEASE
     Dosage: 20 MG/KG, INTRAVENOUS; 10 MG/KG, INTRAVENOUS
     Route: 042
     Dates: start: 19960130
  4. REMICADE [Suspect]
     Indication: CROHN'S DISEASE
     Dosage: 20 MG/KG, INTRAVENOUS; 10 MG/KG, INTRAVENOUS
     Route: 042
     Dates: start: 19960321
  5. REMICADE [Suspect]
     Indication: CROHN'S DISEASE
     Dosage: 20 MG/KG, INTRAVENOUS; 10 MG/KG, INTRAVENOUS
     Route: 042
     Dates: start: 19960516
  6. REMICADE [Suspect]
  7. SUDAFED 12 HOUR [Concomitant]
  8. IMURAN [Concomitant]
  9. PENTASA [Concomitant]
  10. MULTIVITAMIN (MULTIVITAMINS) [Concomitant]

REACTIONS (1)
  - BASAL CELL CARCINOMA [None]
